FAERS Safety Report 5030700-4 (Version None)
Quarter: 2006Q2

REPORT INFORMATION
  Report Type: 
  Country: None (occurrence: None)
  Receive Date: 20060615
  Receipt Date: 20060530
  Transmission Date: 20061013
  Serious: Yes (Hospitalization)
  Sender: FDA-Public Use
  Company Number: T06-GER-02362-01

PATIENT
  Age: 82 Year
  Sex: Male

DRUGS (6)
  1. MEMANTINE HCL [Suspect]
     Dosage: 10 MG BID
     Dates: start: 20060526
  2. MEMANTINE HCL [Suspect]
     Dates: start: 20060501, end: 20060525
  3. OXAZEPAM [Suspect]
     Dosage: 5 MG BID
     Dates: start: 20060524
  4. OXAZEPAM [Suspect]
     Dosage: 10 MG BID
     Dates: end: 20060523
  5. REMINYL (GALANTAMINE) [Concomitant]
  6. MELPERON (MELPERONE HYDROCHLORIDE) [Concomitant]

REACTIONS (3)
  - OCULOGYRATION [None]
  - PARTIAL SEIZURES [None]
  - STATUS EPILEPTICUS [None]
